FAERS Safety Report 18894900 (Version 3)
Quarter: 2024Q4

REPORT INFORMATION
  Report Type: Report from Study
  Country: DE (occurrence: DE)
  Receive Date: 20210215
  Receipt Date: 20241104
  Transmission Date: 20250115
  Serious: Yes (Hospitalization, Other)
  Sender: BIOCON
  Company Number: DE-ROCHE-2009775

PATIENT

DRUGS (19)
  1. TRASTUZUMAB [Suspect]
     Active Substance: TRASTUZUMAB
     Indication: Breast cancer metastatic
     Dosage: 480 MILLIGRAM, Q3W
     Route: 042
     Dates: start: 20170901, end: 20180131
  2. TRASTUZUMAB [Suspect]
     Active Substance: TRASTUZUMAB
     Dosage: 420 MILLIGRAM, Q3W
     Route: 042
     Dates: start: 20170922, end: 20180131
  3. TRASTUZUMAB [Suspect]
     Active Substance: TRASTUZUMAB
     Dosage: 420 MILLIGRAM, Q3W
     Route: 042
     Dates: start: 20180315
  4. TRASTUZUMAB [Suspect]
     Active Substance: TRASTUZUMAB
     Dosage: 288 MILLIGRAM, Q3W
     Route: 042
     Dates: start: 20180404
  5. TRASTUZUMAB [Suspect]
     Active Substance: TRASTUZUMAB
     Dosage: 1260 MG, QW
     Route: 042
     Dates: start: 20170922, end: 20180131
  6. TRASTUZUMAB [Suspect]
     Active Substance: TRASTUZUMAB
     Dosage: 480 MILLIGRAM, Q3W
     Route: 042
     Dates: start: 20170922
  7. TRASTUZUMAB [Suspect]
     Active Substance: TRASTUZUMAB
     Dosage: 1440 MILLIGRAM, QW
     Route: 042
     Dates: start: 20170901, end: 20180131
  8. TRASTUZUMAB [Suspect]
     Active Substance: TRASTUZUMAB
     Dosage: 420 MILLIGRAM, Q3W
     Route: 042
     Dates: start: 20180315
  9. DOCETAXEL [Suspect]
     Active Substance: DOCETAXEL
     Indication: Breast cancer metastatic
     Dosage: 157 MILLIGRAM, QW (LAST DOSE OF DOCETAXEL PRIOR TO THE EVENT BLOODY NAIL BED WAS ON 10/NOV/2017 (168
     Route: 042
     Dates: start: 20170908, end: 20171110
  10. DOCETAXEL [Suspect]
     Active Substance: DOCETAXEL
     Dosage: 157 MILLIGRAM, QW
     Route: 042
     Dates: end: 20171117
  11. DOCETAXEL [Suspect]
     Active Substance: DOCETAXEL
     Dosage: 168 MILLIGRAM, QW
     Route: 042
     Dates: start: 20171110, end: 20171110
  12. PERTUZUMAB [Suspect]
     Active Substance: PERTUZUMAB
     Indication: Breast cancer metastatic
     Dosage: 480 MILLIGRAM, Q3W
     Route: 042
     Dates: start: 20170901, end: 20171127
  13. PERTUZUMAB [Suspect]
     Active Substance: PERTUZUMAB
     Dosage: 480 MILLIGRAM, Q3W
     Route: 042
     Dates: start: 20170922
  14. PERTUZUMAB [Suspect]
     Active Substance: PERTUZUMAB
     Dosage: 420 MILLIGRAM, Q3W
     Route: 042
     Dates: start: 20170922
  15. PERTUZUMAB [Suspect]
     Active Substance: PERTUZUMAB
     Dosage: 1440 MILLIGRAM, QW
     Route: 042
     Dates: start: 20170922
  16. PERTUZUMAB [Suspect]
     Active Substance: PERTUZUMAB
     Dosage: 1440 MILLIGRAM, QW, 480 MG, TIW
     Route: 042
     Dates: start: 20240901
  17. PERTUZUMAB [Suspect]
     Active Substance: PERTUZUMAB
     Dosage: 480 MILLIGRAM, Q3W
     Route: 042
  18. ADO-TRASTUZUMAB EMTANSINE [Suspect]
     Active Substance: ADO-TRASTUZUMAB EMTANSINE
     Indication: Breast cancer metastatic
     Dosage: 288 MG, Q3W
     Route: 042
  19. HERCEPTIN [Suspect]
     Active Substance: TRASTUZUMAB
     Indication: Breast cancer metastatic
     Dosage: 480 MG, QW
     Route: 042

REACTIONS (16)
  - Metastases to central nervous system [Not Recovered/Not Resolved]
  - Cataract [Not Recovered/Not Resolved]
  - Urinary tract infection [Not Recovered/Not Resolved]
  - Pneumonia [Not Recovered/Not Resolved]
  - Fatigue [Not Recovered/Not Resolved]
  - Herpes zoster [Not Recovered/Not Resolved]
  - Malignant neoplasm progression [Not Recovered/Not Resolved]
  - Nail bed bleeding [Not Recovered/Not Resolved]
  - Sensory disturbance [Not Recovered/Not Resolved]
  - Muscular weakness [Recovered/Resolved]
  - Dysuria [Recovered/Resolved]
  - Nocturia [Not Recovered/Not Resolved]
  - Headache [Recovered/Resolved]
  - Polyneuropathy [Not Recovered/Not Resolved]
  - Dyspnoea [Recovered/Resolved]
  - Drug ineffective [Unknown]

NARRATIVE: CASE EVENT DATE: 20170901
